FAERS Safety Report 7721761-X (Version None)
Quarter: 2011Q3

REPORT INFORMATION
  Report Type: 
  Country: None (occurrence: None)
  Receive Date: 20110831
  Receipt Date: 20110826
  Transmission Date: 20111222
  Serious: Yes (Hospitalization, Other)
  Sender: FDA-Public Use
  Company Number: US-ALEXION-A201101211

PATIENT
  Sex: Male

DRUGS (1)
  1. SOLIRIS [Suspect]
     Indication: PAROXYSMAL NOCTURNAL HAEMOGLOBINURIA
     Dosage: UNK
     Route: 042

REACTIONS (6)
  - PNEUMONIA ASPIRATION [None]
  - CLOSTRIDIAL INFECTION [None]
  - ACUTE MYELOID LEUKAEMIA [None]
  - PLATELET TRANSFUSION [None]
  - CONFUSIONAL STATE [None]
  - PACKED RED BLOOD CELL TRANSFUSION [None]
